FAERS Safety Report 24869089 (Version 3)
Quarter: 2025Q1

REPORT INFORMATION
  Report Type: Spontaneous
  Country: JP (occurrence: JP)
  Receive Date: 20250121
  Receipt Date: 20250312
  Transmission Date: 20250409
  Serious: Yes (Other)
  Sender: JOHNSON AND JOHNSON
  Company Number: JP-MTPC-MTPC2025-0001230

PATIENT
  Age: 61 Year
  Sex: Male

DRUGS (16)
  1. REMICADE [Suspect]
     Active Substance: INFLIXIMAB
     Indication: Psoriatic arthropathy
     Dosage: 6 MILLIGRAM/KILOGRAM, QD
     Route: 041
     Dates: start: 20231129
  2. REMICADE [Suspect]
     Active Substance: INFLIXIMAB
     Dosage: 360 MILLIGRAM, QD
     Route: 041
     Dates: start: 20241106, end: 20241106
  3. REMICADE [Suspect]
     Active Substance: INFLIXIMAB
     Dosage: 6 MILLIGRAM/KILOGRAM, QD
     Route: 041
     Dates: start: 20241204, end: 20241204
  4. METHOTREXATE [Suspect]
     Active Substance: METHOTREXATE
     Indication: Psoriatic arthropathy
     Dosage: 10 MILLIGRAM, 1/WEEK
     Route: 048
     Dates: start: 20231129, end: 20231226
  5. METHOTREXATE [Suspect]
     Active Substance: METHOTREXATE
     Dosage: 11 MILLIGRAM, QD
     Route: 048
     Dates: start: 20231227, end: 20240123
  6. METHOTREXATE [Suspect]
     Active Substance: METHOTREXATE
     Dosage: 12 MILLIGRAM, QD
     Route: 048
     Dates: start: 20240124, end: 20240220
  7. METHOTREXATE [Suspect]
     Active Substance: METHOTREXATE
     Dosage: 14 MILLIGRAM, QD
     Route: 048
     Dates: start: 20240221, end: 20240421
  8. METHOTREXATE [Suspect]
     Active Substance: METHOTREXATE
     Dosage: 12 MILLIGRAM, QD
     Route: 048
     Dates: start: 20240422, end: 20241105
  9. METHOTREXATE [Suspect]
     Active Substance: METHOTREXATE
     Dosage: 14 MILLIGRAM, QD
     Route: 048
     Dates: start: 20241106, end: 20250107
  10. LOXOPROFEN SODIUM [Suspect]
     Active Substance: LOXOPROFEN SODIUM
     Indication: Analgesic therapy
     Dosage: 180 MILLIGRAM, QD
     Route: 048
     Dates: start: 20231129
  11. CALONAL [Suspect]
     Active Substance: ACETAMINOPHEN
     Indication: Analgesic therapy
     Dosage: 1800 MILLIGRAM, QD
     Route: 048
     Dates: start: 20231129
  12. FOLIC ACID [Suspect]
     Active Substance: FOLIC ACID
     Indication: Adverse reaction
     Dosage: 5 MILLIGRAM, 1/WEEK
     Route: 048
     Dates: start: 20231129, end: 20250107
  13. LANSOPRAZOLE [Suspect]
     Active Substance: LANSOPRAZOLE
     Indication: Hyperchlorhydria
     Dosage: 15 MILLIGRAM, QD
     Route: 048
     Dates: start: 20231129
  14. MIZORIBINE [Suspect]
     Active Substance: MIZORIBINE
     Indication: Psoriatic arthropathy
     Dosage: 300 MILLIGRAM, 1/WEEK
     Route: 048
     Dates: start: 20240124, end: 20240321
  15. MIZORIBINE [Suspect]
     Active Substance: MIZORIBINE
     Dosage: 450 MILLIGRAM, 1/WEEK
     Route: 048
     Dates: start: 20240322, end: 20250107
  16. INFLIXIMAB [Concomitant]
     Active Substance: INFLIXIMAB
     Indication: Product used for unknown indication
     Route: 065

REACTIONS (2)
  - B-cell lymphoma [Recovering/Resolving]
  - Off label use [Unknown]

NARRATIVE: CASE EVENT DATE: 20231129
